FAERS Safety Report 18624841 (Version 2)
Quarter: 2021Q1

REPORT INFORMATION
  Report Type: Report from Study
  Country: CA (occurrence: CA)
  Receive Date: 20201216
  Receipt Date: 20210125
  Transmission Date: 20210419
  Serious: Yes (Other)
  Sender: FDA-Public Use
  Company Number: CA-NALPROPION PHARMACEUTICALS INC.-2020-010806

PATIENT

DRUGS (7)
  1. CONTRAVE [Suspect]
     Active Substance: BUPROPION HYDROCHLORIDE\NALTREXONE HYDROCHLORIDE
     Indication: WEIGHT CONTROL
     Dosage: STRENGTH: 90/8 MG, ON 01/JUL/2020 APPROXIMATELY, 1 PILL IN THE MORNING
     Route: 048
     Dates: start: 202007, end: 20200707
  2. CONTRAVE [Suspect]
     Active Substance: BUPROPION HYDROCHLORIDE\NALTREXONE HYDROCHLORIDE
     Dosage: STRENGTH: 90/8 MG (1 DOSAGE FORMS,2 IN 1 D)
     Route: 048
     Dates: start: 20200708, end: 20200714
  3. MINOCYCLINE [Concomitant]
     Active Substance: MINOCYCLINE HYDROCHLORIDE
     Indication: ROSACEA
     Dosage: 500 MG,1 IN 1 D
     Route: 048
  4. CONTRAVE [Suspect]
     Active Substance: BUPROPION HYDROCHLORIDE\NALTREXONE HYDROCHLORIDE
     Dosage: STRENGTH: 90/8 MG, 2 PILLS IN THE MORNING AND 1 PILL AT NIGHT
     Route: 048
     Dates: start: 20200715, end: 20200729
  5. CONTRAVE [Suspect]
     Active Substance: BUPROPION HYDROCHLORIDE\NALTREXONE HYDROCHLORIDE
     Dosage: STRENGTH: 90/8 MG; STOPPED ON 11/OCT/2020 (APPROXIMATELY) (1 DOSAGE FORMS,2 IN 1 D)
     Route: 048
     Dates: start: 20200730, end: 202010
  6. CONTRAVE [Suspect]
     Active Substance: BUPROPION HYDROCHLORIDE\NALTREXONE HYDROCHLORIDE
     Dosage: STRENGTH: 90/8 MG; 2 PILLS IN MORNING AND NIGHT, 12/OCT/2020 (APPROX)
     Route: 048
     Dates: start: 202010, end: 20201110
  7. CONTRAVE [Suspect]
     Active Substance: BUPROPION HYDROCHLORIDE\NALTREXONE HYDROCHLORIDE
     Dosage: STRENGTH: 90/8 MG; 2 PILLS IN THE MORNING; REDUCED DOSE
     Route: 048
     Dates: start: 20201111, end: 20201223

REACTIONS (11)
  - Drug ineffective [Unknown]
  - Product quality issue [Unknown]
  - Drug titration error [Unknown]
  - Inability to afford medication [Unknown]
  - Diabetic eye disease [Unknown]
  - Poor quality sleep [Recovering/Resolving]
  - Constipation [Not Recovered/Not Resolved]
  - Nightmare [Recovering/Resolving]
  - Pruritus [Recovered/Resolved]
  - Product prescribing error [Unknown]
  - Amnesia [Recovering/Resolving]

NARRATIVE: CASE EVENT DATE: 2020
